FAERS Safety Report 6987595-9 (Version None)
Quarter: 2010Q3

REPORT INFORMATION
  Report Type: 
  Country: None (occurrence: None)
  Receive Date: 20100916
  Receipt Date: 20100908
  Transmission Date: 20110219
  Serious: Yes (Hospitalization)
  Sender: FDA-Public Use
  Company Number: FI-AMGEN-QUU436577

PATIENT
  Age: 80 Year
  Sex: Male

DRUGS (4)
  1. NEUPOGEN [Suspect]
     Indication: PRODUCT USED FOR UNKNOWN INDICATION
     Dates: start: 20100302
  2. ARANESP [Suspect]
     Indication: MYELODYSPLASTIC SYNDROME
  3. CORTISONE ACETATE [Concomitant]
  4. UNSPECIFIED ANTIHYPERTENSIVE AGENT [Concomitant]

REACTIONS (2)
  - HAEMOGLOBIN INCREASED [None]
  - PNEUMONIA [None]
